FAERS Safety Report 6080803-0 (Version None)
Quarter: 2009Q1

REPORT INFORMATION
  Report Type: 
  Country: None (occurrence: None)
  Receive Date: 20090217
  Receipt Date: 20090204
  Transmission Date: 20090719
  Serious: Yes (Other)
  Sender: FDA-Public Use
  Company Number: US-BIOGENIDEC-2008BI028090

PATIENT
  Age: 65 Year
  Sex: Male

DRUGS (13)
  1. TYSABRI [Suspect]
     Indication: MULTIPLE SCLEROSIS
     Route: 042
     Dates: start: 20071214, end: 20080911
  2. TYSABRI [Suspect]
     Route: 042
     Dates: start: 20090114
  3. ZOCOR [Concomitant]
  4. PERCOCET [Concomitant]
  5. CIALIS [Concomitant]
  6. PRINIVIL [Concomitant]
  7. PROVIGIL [Concomitant]
  8. TYLENOL [Concomitant]
  9. MIRAPEX [Concomitant]
  10. IBUPROFEN [Concomitant]
  11. FISH OIL [Concomitant]
  12. MULTI-VITAMINS [Concomitant]
  13. GLUCOSAMINE [Concomitant]

REACTIONS (2)
  - DRUG INEFFECTIVE [None]
  - HAEMOLYTIC ANAEMIA [None]
